FAERS Safety Report 17926385 (Version 6)
Quarter: 2020Q3

REPORT INFORMATION
  Report Type: Report from Study
  Country: BR (occurrence: BR)
  Receive Date: 20200622
  Receipt Date: 20200727
  Transmission Date: 20201103
  Serious: Yes (Death, Other)
  Sender: FDA-Public Use
  Company Number: BR-PFIZER INC-2020239518

PATIENT
  Age: 16 Year
  Sex: Male
  Weight: 44 kg

DRUGS (2)
  1. ARACYTIN [Concomitant]
     Active Substance: CYTARABINE
     Indication: ACUTE MYELOID LEUKAEMIA REFRACTORY
     Dosage: 200 MG, DAY 1, 4, 7
     Route: 041
     Dates: start: 20200417, end: 20200423
  2. MYLOTARG [Suspect]
     Active Substance: GEMTUZUMAB OZOGAMICIN
     Indication: ACUTE MYELOID LEUKAEMIA REFRACTORY
     Dosage: 5 MG, ON D1, D4 AND D7
     Route: 042
     Dates: start: 20200417, end: 20200423

REACTIONS (3)
  - Klebsiella sepsis [Fatal]
  - Intestinal haemorrhage [Fatal]
  - Pancytopenia [Unknown]

NARRATIVE: CASE EVENT DATE: 20200501
